FAERS Safety Report 4500379-6 (Version None)
Quarter: 2004Q3

REPORT INFORMATION
  Report Type: 
  Country: None (occurrence: None)
  Receive Date: 20040928
  Receipt Date: 20040802
  Transmission Date: 20050211
  Serious: No
  Sender: FDA-Public Use
  Company Number: 04P-163-0268763-00

PATIENT
  Age: 48 Year
  Sex: Male
  Weight: 117.9352 kg

DRUGS (5)
  1. HUMIRA [Suspect]
     Indication: RHEUMATOID ARTHRITIS
     Dosage: 40 MG, SUBCUTANEOUS
     Route: 058
     Dates: start: 20040201, end: 20040601
  2. METHOTREXATE [Concomitant]
  3. PREDNISONE [Concomitant]
  4. ATORVASTATIN CALCIUM [Concomitant]
  5. VICODIN [Concomitant]

REACTIONS (1)
  - INFLUENZA LIKE ILLNESS [None]
